FAERS Safety Report 8144267-5 (Version None)
Quarter: 2012Q1

REPORT INFORMATION
  Report Type: 
  Country: None (occurrence: None)
  Receive Date: 20120214
  Receipt Date: 20120207
  Transmission Date: 20120608
  Serious: Yes (Life-Threatening, Hospitalization, Disabling, Other)
  Sender: FDA-Public Use
  Company Number: 2010SP054450

PATIENT
  Age: 26 Year
  Sex: Female
  Weight: 68.0396 kg

DRUGS (2)
  1. NUVARING [Suspect]
     Indication: CONTRACEPTION
     Dosage: 1 DF;Q3W;VAG
     Route: 067
     Dates: start: 20080201, end: 20081027
  2. ADDERALL XR 10 [Concomitant]

REACTIONS (27)
  - DYSPNOEA [None]
  - NIGHTMARE [None]
  - DECREASED INTEREST [None]
  - PULMONARY EMBOLISM [None]
  - HYPERCOAGULATION [None]
  - ATTENTION DEFICIT/HYPERACTIVITY DISORDER [None]
  - POST-TRAUMATIC STRESS DISORDER [None]
  - ABDOMINAL PAIN LOWER [None]
  - THROMBOSIS [None]
  - VOMITING [None]
  - CHEST PAIN [None]
  - MUSCLE STRAIN [None]
  - ASTHENIA [None]
  - FEAR [None]
  - HYPERVIGILANCE [None]
  - HYPERHIDROSIS [None]
  - FATIGUE [None]
  - DISSOCIATION [None]
  - DEPRESSION [None]
  - VIRAL INFECTION [None]
  - MULTIPLE INJURIES [None]
  - MUSCLE SPASMS [None]
  - PYREXIA [None]
  - GAIT DISTURBANCE [None]
  - NAUSEA [None]
  - ACTIVITIES OF DAILY LIVING IMPAIRED [None]
  - INSOMNIA [None]
